FAERS Safety Report 7381184-2 (Version None)
Quarter: 2011Q1

REPORT INFORMATION
  Report Type: 
  Country: None (occurrence: None)
  Receive Date: 20110324
  Receipt Date: 20110324
  Transmission Date: 20110831
  Serious: Yes (Hospitalization, Other)
  Sender: FDA-Public Use
  Company Number: None

PATIENT
  Age: 39 Year
  Sex: Female
  Weight: 61.6892 kg

DRUGS (1)
  1. ORACEA [Suspect]
     Indication: ROSACEA
     Dosage: 40MG ONCE PO
     Route: 048
     Dates: start: 20101229, end: 20110204

REACTIONS (5)
  - HEART RATE INCREASED [None]
  - NAUSEA [None]
  - MALAISE [None]
  - URINE OUTPUT DECREASED [None]
  - CHEST PAIN [None]
